FAERS Safety Report 8114429-1 (Version None)
Quarter: 2012Q1

REPORT INFORMATION
  Report Type: 
  Country: None (occurrence: None)
  Receive Date: 20120206
  Receipt Date: 20120127
  Transmission Date: 20120608
  Serious: No
  Sender: FDA-Public Use
  Company Number: US-BIOGENIDEC-2012BI003710

PATIENT
  Age: 56 Year
  Sex: Female

DRUGS (2)
  1. TYSABRI [Suspect]
     Indication: MULTIPLE SCLEROSIS
     Route: 042
  2. TYSABRI [Suspect]
     Route: 042
     Dates: start: 20070904

REACTIONS (6)
  - ALTERED VISUAL DEPTH PERCEPTION [None]
  - THYROID DISORDER [None]
  - ARTHROPATHY [None]
  - MUSCULOSKELETAL STIFFNESS [None]
  - CLUMSINESS [None]
  - OPTIC NEURITIS [None]
